FAERS Safety Report 5078303-X (Version None)
Quarter: 2006Q3

REPORT INFORMATION
  Report Type: 
  Country: None (occurrence: None)
  Receive Date: 20060720
  Receipt Date: 20060613
  Transmission Date: 20061208
  Serious: No
  Sender: FDA-Public Use
  Company Number: HQWYE265319JUN06

PATIENT
  Age: 84 Year
  Sex: Female
  Weight: 69.01 kg

DRUGS (4)
  1. ADVIL PM [Suspect]
     Indication: INSOMNIA
     Dosage: 1 TO 2 CAPLETS EVEYDAY, ORAL
     Route: 048
     Dates: start: 20060607, end: 20060608
  2. ADVIL PM [Suspect]
     Indication: PAIN IN EXTREMITY
     Dosage: 1 TO 2 CAPLETS EVEYDAY, ORAL
     Route: 048
     Dates: start: 20060607, end: 20060608
  3. FISH (FISH OIL) [Concomitant]
  4. UNSPECIFIED ANTIDIABETIC AGENT (UNSPECIFIED ANTIDIABETIC AGENT) [Concomitant]

REACTIONS (2)
  - DYSPNOEA [None]
  - NERVOUSNESS [None]
